FAERS Safety Report 21829311 (Version 1)
Quarter: 2023Q1

REPORT INFORMATION
  Report Type: Spontaneous
  Country: US (occurrence: US)
  Receive Date: 20230106
  Receipt Date: 20230106
  Transmission Date: 20230418
  Serious: Yes (Other)
  Sender: FDA-Public Use
  Company Number: US-SA-2023SA003200

PATIENT
  Age: 30 Year
  Sex: Female

DRUGS (1)
  1. CEREZYME [Suspect]
     Active Substance: IMIGLUCERASE
     Indication: Gaucher^s disease type I

REACTIONS (3)
  - Glaucoma [Unknown]
  - Depression [Unknown]
  - Exposure during pregnancy [Unknown]
